FAERS Safety Report 10914471 (Version 1)
Quarter: 2015Q1

REPORT INFORMATION
  Report Type: Spontaneous
  Country: US (occurrence: US)
  Receive Date: 20150313
  Receipt Date: 20150313
  Transmission Date: 20150721
  Serious: Yes (Death)
  Sender: FDA-Public Use
  Company Number: US-INCYTE CORPORATION-2015IN000965

PATIENT
  Sex: Male
  Weight: 59.86 kg

DRUGS (15)
  1. VITAMIN E                          /00110501/ [Concomitant]
  2. ACYCLOVIR                          /00587301/ [Concomitant]
     Active Substance: ACYCLOVIR
  3. LANSOPRAZOLE. [Concomitant]
     Active Substance: LANSOPRAZOLE
  4. CLONAZEPAM. [Concomitant]
     Active Substance: CLONAZEPAM
  5. MIRTAZAPINE. [Concomitant]
     Active Substance: MIRTAZAPINE
  6. MULTIVITAMIN                       /00097801/ [Concomitant]
     Active Substance: VITAMINS
  7. ONDANSETRON [Concomitant]
     Active Substance: ONDANSETRON
  8. VITAMIN C [Concomitant]
     Active Substance: ASCORBIC ACID
  9. CARBIDOPA-LEVODOPA-B [Concomitant]
     Active Substance: CARBIDOPA\LEVODOPA
  10. PREDNISONE. [Concomitant]
     Active Substance: PREDNISONE
  11. JAKAFI [Suspect]
     Active Substance: RUXOLITINIB
     Indication: MYELOFIBROSIS
     Dosage: 20 MG, BID
     Route: 048
     Dates: start: 20131207
  12. DEXAMETHASONE. [Concomitant]
     Active Substance: DEXAMETHASONE
  13. CYCLOPHOSPHAMIDE. [Concomitant]
     Active Substance: CYCLOPHOSPHAMIDE
  14. ALLOPURINOL. [Concomitant]
     Active Substance: ALLOPURINOL
  15. TYLENOL [Concomitant]
     Active Substance: ACETAMINOPHEN

REACTIONS (1)
  - Death [Fatal]
